FAERS Safety Report 26043979 (Version 1)
Quarter: 2025Q4

REPORT INFORMATION
  Report Type: Spontaneous
  Country: EU (occurrence: EU)
  Receive Date: 20251114
  Receipt Date: 20251114
  Transmission Date: 20260117
  Serious: Yes (Other)
  Sender: TWI PHARMACEUTICALS
  Company Number: EU-TWI PHARMACEUTICAL, INC-20251101436

PATIENT
  Age: 44 Year
  Sex: Male

DRUGS (1)
  1. DIMETHYL FUMARATE [Suspect]
     Active Substance: DIMETHYL FUMARATE
     Indication: Multiple sclerosis
     Dosage: UNK
     Route: 065

REACTIONS (2)
  - Necrotising retinitis [Recovering/Resolving]
  - Varicella zoster virus infection [Recovering/Resolving]
